FAERS Safety Report 8861002 (Version 1)
Quarter: 2012Q4

REPORT INFORMATION
  Report Type: Spontaneous
  Country: ES (occurrence: None)
  Receive Date: 20121023
  Receipt Date: 20121023
  Transmission Date: 20130627
  Serious: Yes (Other)
  Sender: FDA-Public Use
  Company Number: 2012P1060917

PATIENT
  Age: 36 Year
  Sex: Female

DRUGS (1)
  1. FENTANYL PATCH 25 MCG/HR (NO PREF. NAME) [Suspect]
     Dosage: 1 Patch;  TDER
     Route: 062
     Dates: start: 20120529

REACTIONS (2)
  - Respiratory depression [None]
  - Product substitution issue [None]
